FAERS Safety Report 8316796-2 (Version None)
Quarter: 2012Q2

REPORT INFORMATION
  Report Type: 
  Country: None (occurrence: None)
  Receive Date: 20120427
  Receipt Date: 20120418
  Transmission Date: 20120825
  Serious: Yes (Hospitalization)
  Sender: FDA-Public Use
  Company Number: US-BAYER-2011-114235

PATIENT
  Age: 18 Year
  Sex: Female
  Weight: 67 kg

DRUGS (7)
  1. TOPAMAX [Concomitant]
     Dosage: UNK
     Dates: start: 20090630
  2. TOPIRAMATE [Concomitant]
     Dosage: 100 MG, UNK
     Dates: start: 20090409
  3. DROSPIRENONE AND ETHINYL ESTRADIOL [Suspect]
     Dosage: UNK
     Dates: start: 20081001, end: 20111101
  4. ADDERALL 5 [Concomitant]
     Dosage: 30 MG, UNK
  5. ADDERALL 5 [Concomitant]
     Indication: ATTENTION DEFICIT/HYPERACTIVITY DISORDER
     Dosage: UNK
     Dates: start: 20070101, end: 20100101
  6. TOPIRAMATE [Concomitant]
     Dosage: 100 MG, UNK
     Dates: start: 20090409
  7. TOPAMAX [Concomitant]
     Dosage: UNK MG, UNK
     Dates: start: 20090630

REACTIONS (6)
  - PAIN [None]
  - EMOTIONAL DISTRESS [None]
  - GENERAL PHYSICAL HEALTH DETERIORATION [None]
  - CHOLECYSTITIS CHRONIC [None]
  - GALLBLADDER DISORDER [None]
  - ANXIETY [None]
